FAERS Safety Report 4378691-3 (Version None)
Quarter: 2004Q2

REPORT INFORMATION
  Report Type: 
  Country: None (occurrence: None)
  Receive Date: 20040616
  Receipt Date: 20040609
  Transmission Date: 20050107
  Serious: Yes (Other)
  Sender: FDA-Public Use
  Company Number: AU-ROCHE-370541

PATIENT
  Age: 57 Year
  Sex: Female

DRUGS (1)
  1. CEFTRIAXONE SODIUM [Suspect]
     Indication: CELLULITIS
     Route: 065
     Dates: start: 20030429, end: 20030429

REACTIONS (4)
  - ABDOMINAL PAIN [None]
  - RASH [None]
  - TACHYCARDIA [None]
  - URTICARIA [None]
